FAERS Safety Report 26113509 (Version 1)
Quarter: 2025Q4

REPORT INFORMATION
  Report Type: Spontaneous
  Country: GB (occurrence: GB)
  Receive Date: 20251202
  Receipt Date: 20251202
  Transmission Date: 20260117
  Serious: Yes (Other)
  Sender: MYLAN
  Company Number: None

PATIENT
  Age: 84 Year
  Sex: Female
  Weight: 52 kg

DRUGS (1)
  1. TIMOLOL [Suspect]
     Active Substance: TIMOLOL
     Indication: Product used for unknown indication
     Dosage: UNK (FOR TOPICAL APPLICATION IN THE EYE 60 INTO 0.3ML UNIT DOSES)

REACTIONS (5)
  - Amnesia [Unknown]
  - Hypotension [Unknown]
  - Dyspnoea [Not Recovered/Not Resolved]
  - Aphonia [Unknown]
  - Tinnitus [Unknown]

NARRATIVE: CASE EVENT DATE: 20251122
